FAERS Safety Report 16164308 (Version 1)
Quarter: 2019Q2

REPORT INFORMATION
  Report Type: Report from Study
  Country: KR (occurrence: KR)
  Receive Date: 20190405
  Receipt Date: 20190405
  Transmission Date: 20190711
  Serious: Yes (Death, Hospitalization)
  Sender: FDA-Public Use
  Company Number: KR-BAYER-2019-005134

PATIENT
  Sex: Female
  Weight: 61 kg

DRUGS (9)
  1. STIVARGA [Suspect]
     Active Substance: REGORAFENIB
     Indication: HEPATOCELLULAR CARCINOMA
     Dosage: 80 MG
     Dates: start: 20171120
  2. PANTOLOC [PANTOPRAZOLE SODIUM SESQUIHYDRATE] [Concomitant]
     Active Substance: PANTOPRAZOLE SODIUM
     Indication: GASTROINTESTINAL ULCER
     Dosage: 20 MG VERY 24 HOURS
     Dates: start: 20170705
  3. ACETAMINOPHEN. [Concomitant]
     Active Substance: ACETAMINOPHEN
     Indication: UPPER RESPIRATORY TRACT INFECTION
     Dosage: 650 MG, TID
     Dates: start: 20180221, end: 20180225
  4. URSA [Concomitant]
     Active Substance: URSODIOL
     Dosage: 200 MG, BID
     Dates: start: 20160217
  5. AMBRECT [Concomitant]
     Indication: UPPER RESPIRATORY TRACT INFECTION
     Dosage: 30 MG, TID
     Dates: start: 20180221, end: 20180225
  6. STIVARGA [Suspect]
     Active Substance: REGORAFENIB
     Indication: HEPATOCELLULAR CARCINOMA
     Dosage: 160 MG
     Route: 048
     Dates: start: 20171122
  7. LEGALON [Concomitant]
     Active Substance: DIETARY SUPPLEMENT\HERBALS\MILK THISTLE
     Dosage: 140 MG, BID
     Dates: start: 20160217
  8. ARONAMIN GOLD [Concomitant]
     Active Substance: ALPHA-TOCOPHEROL ACETATE\ASCORBIC ACID\FURSULTIAMINE\HYDROXOCOBALAMIN ACETATE\RIBOFLAVIN TETRABUTYRATE
     Dosage: 1 TAB EVERY 24 HOURS
     Dates: start: 20160217
  9. BENPROPERINE [Concomitant]
     Active Substance: BENPROPERINE
     Indication: UPPER RESPIRATORY TRACT INFECTION
     Dosage: 20 MG, TID
     Dates: start: 20180221, end: 20180225

REACTIONS (6)
  - Oesophageal varices haemorrhage [Recovered/Resolved]
  - Acute kidney injury [Fatal]
  - Varices oesophageal [Recovered/Resolved]
  - Colitis ischaemic [Not Recovered/Not Resolved]
  - Hepatorenal syndrome [Fatal]
  - Liver disorder [Recovered/Resolved]

NARRATIVE: CASE EVENT DATE: 20181205
